FAERS Safety Report 15093211 (Version 1)
Quarter: 2018Q2

REPORT INFORMATION
  Report Type: Spontaneous
  Country: AR (occurrence: AR)
  Receive Date: 20180629
  Receipt Date: 20180629
  Transmission Date: 20180711
  Serious: Yes (Hospitalization, Other)
  Sender: FDA-Public Use
  Company Number: AR-PFIZER INC-2018260039

PATIENT
  Age: 65 Year
  Sex: Male

DRUGS (2)
  1. TOFACITINIB CITRATE [Suspect]
     Active Substance: TOFACITINIB CITRATE
     Dosage: UNK UNK, 2X/DAY
     Dates: start: 2016
  2. PREDNISONA [Concomitant]
     Active Substance: PREDNISONE
     Dosage: 5 MG, DAILY
     Dates: start: 2016

REACTIONS (9)
  - Drug eruption [Unknown]
  - Skin lesion [Unknown]
  - Urinary tract infection [Unknown]
  - Back pain [Unknown]
  - Pyrexia [Unknown]
  - Aortitis [Unknown]
  - Leukopenia [Unknown]
  - Aortic aneurysm [Unknown]
  - Urine analysis abnormal [Unknown]

NARRATIVE: CASE EVENT DATE: 201801
